FAERS Safety Report 24771541 (Version 1)
Quarter: 2024Q4

REPORT INFORMATION
  Report Type: Spontaneous
  Country: US (occurrence: US)
  Receive Date: 20241224
  Receipt Date: 20241224
  Transmission Date: 20250114
  Serious: Yes (Life-Threatening, Hospitalization)
  Sender: AMGEN
  Company Number: US-AMGEN-USASP2024244805

PATIENT
  Age: 12 Year
  Sex: Female

DRUGS (9)
  1. RITUXIMAB [Suspect]
     Active Substance: RITUXIMAB
     Indication: Marginal zone lymphoma
     Dosage: 375 MILLIGRAM/SQ. METER
     Route: 065
  2. PREDNISONE [Suspect]
     Active Substance: PREDNISONE
     Indication: Marginal zone lymphoma
     Dosage: UNK
     Route: 065
  3. ACETAMINOPHEN [Concomitant]
     Active Substance: ACETAMINOPHEN
     Dosage: 325 MILLIGRAM
     Route: 065
  4. DIPHENHYDRAMINE [Concomitant]
     Active Substance: DIPHENHYDRAMINE
     Dosage: 25 MILLIGRAM
     Route: 065
  5. DIPHENHYDRAMINE [Concomitant]
     Active Substance: DIPHENHYDRAMINE
     Dosage: 1 MILLIGRAM/KILOGRAM
  6. HYDROCORTISONE [Concomitant]
     Active Substance: HYDROCORTISONE
     Dosage: 50 MILLIGRAM
     Route: 065
  7. METHYLPREDNISOLONE [Concomitant]
     Active Substance: METHYLPREDNISOLONE
     Dosage: 1 MILLIGRAM/ MILLILITER
     Route: 065
  8. EPIPEN [Concomitant]
     Active Substance: EPINEPHRINE
     Route: 065
  9. DOXYCYCLINE [Concomitant]
     Active Substance: DOXYCYCLINE
     Dosage: 100 MILLIGRAM, BID
     Route: 065

REACTIONS (3)
  - Anaphylactic reaction [Unknown]
  - Skin mass [Recovering/Resolving]
  - Hypersensitivity [Recovering/Resolving]
